FAERS Safety Report 10096736 (Version 2)
Quarter: 2014Q2

REPORT INFORMATION
  Report Type: Spontaneous
  Country: US (occurrence: US)
  Receive Date: 20140422
  Receipt Date: 20140429
  Transmission Date: 20141212
  Serious: Yes (Death, Hospitalization)
  Sender: FDA-Public Use
  Company Number: US-B.I. PHARMACEUTICALS,INC./RIDGEFIELD-2014-BI-18048BP

PATIENT
  Age: 64 Year
  Sex: Male

DRUGS (13)
  1. SPIRIVA [Suspect]
     Indication: CHRONIC OBSTRUCTIVE PULMONARY DISEASE
     Route: 055
     Dates: start: 201303
  2. SPIRONOLACTONE [Concomitant]
     Dosage: 25 MG
     Route: 065
  3. DIOVAN [Concomitant]
     Dosage: 160 MG
     Route: 065
  4. WARFARIN [Concomitant]
     Route: 065
  5. FUROSEMIDE [Concomitant]
     Dosage: 80 MG
     Route: 065
  6. VYTORIN [Concomitant]
     Dosage: DOSE PER APPLICATION:10-40,
     Route: 065
  7. ISOSORBIDE [Concomitant]
     Dosage: 60 MG
     Route: 065
  8. METOPROLOL [Concomitant]
     Dosage: 300 MG
     Route: 065
  9. ADVAIR [Concomitant]
     Dosage: DOSE PER APPLICATION :250/50
     Route: 065
  10. HUMULIN [Concomitant]
     Dosage: DOSE PER APPLICATION:70/30
     Route: 065
  11. POTASSIUM [Concomitant]
     Dosage: 20 MEQ
     Route: 065
  12. ASPIRIN [Concomitant]
     Dosage: 81 MG
     Route: 065
  13. PREDNISONE [Concomitant]
     Route: 065

REACTIONS (2)
  - Respiratory failure [Fatal]
  - Pneumonia [Unknown]
